FAERS Safety Report 25868497 (Version 1)
Quarter: 2025Q4

REPORT INFORMATION
  Report Type: Spontaneous
  Country: IN (occurrence: IN)
  Receive Date: 20251001
  Receipt Date: 20251001
  Transmission Date: 20260117
  Serious: Yes (Life-Threatening, Hospitalization)
  Sender: MYLAN
  Company Number: IN-MYLANLABS-2025M1083076

PATIENT
  Age: 32 Year
  Sex: Male

DRUGS (20)
  1. AMIODARONE [Suspect]
     Active Substance: AMIODARONE
     Indication: Ventricular fibrillation
     Dosage: 300 MILLIGRAM
  2. AMIODARONE [Suspect]
     Active Substance: AMIODARONE
     Dosage: 300 MILLIGRAM
  3. AMIODARONE [Suspect]
     Active Substance: AMIODARONE
     Dosage: 300 MILLIGRAM
     Route: 065
  4. AMIODARONE [Suspect]
     Active Substance: AMIODARONE
     Dosage: 300 MILLIGRAM
     Route: 065
  5. AMIODARONE [Suspect]
     Active Substance: AMIODARONE
     Dosage: 150 MILLIGRAM
  6. AMIODARONE [Suspect]
     Active Substance: AMIODARONE
     Dosage: 150 MILLIGRAM
  7. AMIODARONE [Suspect]
     Active Substance: AMIODARONE
     Dosage: 150 MILLIGRAM
     Route: 065
  8. AMIODARONE [Suspect]
     Active Substance: AMIODARONE
     Dosage: 150 MILLIGRAM
     Route: 065
  9. ESMOLOL [Suspect]
     Active Substance: ESMOLOL HYDROCHLORIDE
     Indication: Ventricular fibrillation
     Dosage: 30 MILLIGRAM
  10. ESMOLOL [Suspect]
     Active Substance: ESMOLOL HYDROCHLORIDE
     Dosage: 30 MILLIGRAM
     Route: 065
  11. ESMOLOL [Suspect]
     Active Substance: ESMOLOL HYDROCHLORIDE
     Dosage: 30 MILLIGRAM
     Route: 065
  12. ESMOLOL [Suspect]
     Active Substance: ESMOLOL HYDROCHLORIDE
     Dosage: 30 MILLIGRAM
  13. TENECTEPLASE [Concomitant]
     Active Substance: TENECTEPLASE
     Indication: Acute coronary syndrome
     Dosage: 40 MILLIGRAM
  14. TENECTEPLASE [Concomitant]
     Active Substance: TENECTEPLASE
     Dosage: 40 MILLIGRAM
     Route: 065
  15. TENECTEPLASE [Concomitant]
     Active Substance: TENECTEPLASE
     Dosage: 40 MILLIGRAM
     Route: 065
  16. TENECTEPLASE [Concomitant]
     Active Substance: TENECTEPLASE
     Dosage: 40 MILLIGRAM
  17. EPINEPHRINE [Concomitant]
     Active Substance: EPINEPHRINE
     Indication: Resuscitation
     Dosage: UNK
  18. EPINEPHRINE [Concomitant]
     Active Substance: EPINEPHRINE
     Dosage: UNK
     Route: 042
  19. EPINEPHRINE [Concomitant]
     Active Substance: EPINEPHRINE
     Dosage: UNK
     Route: 042
  20. EPINEPHRINE [Concomitant]
     Active Substance: EPINEPHRINE
     Dosage: UNK

REACTIONS (1)
  - Drug ineffective [Unknown]
